FAERS Safety Report 9869943 (Version 2)
Quarter: 2014Q2

REPORT INFORMATION
  Report Type: Spontaneous
  Country: PL (occurrence: PL)
  Receive Date: 20140205
  Receipt Date: 20140416
  Transmission Date: 20141212
  Serious: Yes (Hospitalization)
  Sender: FDA-Public Use
  Company Number: PL-ROCHE-1344830

PATIENT
  Sex: Female
  Weight: 90.2 kg

DRUGS (10)
  1. ROACTEMRA [Suspect]
     Indication: RHEUMATOID ARTHRITIS
     Route: 042
     Dates: start: 20130607, end: 20131220
  2. CONTROLOC [Concomitant]
     Route: 048
  3. METIZOL (POLAND) [Concomitant]
     Indication: HYPERTHYROIDISM
     Route: 048
  4. ENCORTON [Concomitant]
     Indication: RHEUMATOID ARTHRITIS
     Route: 048
  5. METOCARD [Concomitant]
     Indication: ARRHYTHMIA
     Route: 048
  6. INHIBACE [Concomitant]
     Indication: HYPERTENSION
     Route: 048
  7. DIUVER [Concomitant]
     Indication: HYPERTENSION
     Route: 065
  8. ZAHRON [Concomitant]
     Indication: HYPERLIPIDAEMIA
     Route: 065
  9. APIDRA [Concomitant]
     Indication: DIABETES MELLITUS
     Route: 065
  10. LANTUS [Concomitant]
     Indication: DIABETES MELLITUS
     Route: 058

REACTIONS (2)
  - Cardiac failure [Recovered/Resolved]
  - Arrhythmia [Recovered/Resolved]
